FAERS Safety Report 6651442-5 (Version None)
Quarter: 2010Q1

REPORT INFORMATION
  Report Type: 
  Country: None (occurrence: None)
  Receive Date: 20100325
  Receipt Date: 20100319
  Transmission Date: 20100710
  Serious: Yes (Hospitalization, Other)
  Sender: FDA-Public Use
  Company Number: US-ROCHE-679253

PATIENT
  Sex: Female

DRUGS (7)
  1. PEGASYS [Suspect]
     Route: 058
     Dates: start: 20081201
  2. RIBAVIRIN [Suspect]
     Dosage: FORM: PILLS; DIVIDED DOSES
     Route: 048
     Dates: start: 20081201
  3. TRAZODONE HCL [Concomitant]
     Indication: INSOMNIA
     Dosage: QD
     Route: 048
  4. LISINOPRIL [Concomitant]
     Indication: HYPERTENSION
     Dosage: FREQUENCY: QD
     Route: 048
  5. LEXAPRO [Concomitant]
     Indication: DEPRESSION
     Dosage: FREQUENCY: QD
     Route: 048
  6. HYDROCHLOROTHIAZIDE [Concomitant]
     Indication: HYPERTENSION
     Dosage: FREQUENCY: QD
     Route: 048
  7. LYRICA [Concomitant]
     Indication: FIBROMYALGIA
     Dosage: FREQUENCY: QD
     Route: 048

REACTIONS (8)
  - ALOPECIA [None]
  - CONFUSIONAL STATE [None]
  - DEHYDRATION [None]
  - LETHARGY [None]
  - LIVER DISORDER [None]
  - MEMORY IMPAIRMENT [None]
  - RENAL FAILURE ACUTE [None]
  - RENAL TUBULAR NECROSIS [None]
